FAERS Safety Report 6284795-0 (Version None)
Quarter: 2009Q3

REPORT INFORMATION
  Report Type: 
  Country: None (occurrence: None)
  Receive Date: 20090723
  Receipt Date: 20090718
  Transmission Date: 20100115
  Serious: Yes (Hospitalization)
  Sender: FDA-Public Use
  Company Number: SAL/IMIQUIMOD-04

PATIENT
  Sex: Male

DRUGS (2)
  1. IMIQUIMOD [Suspect]
     Indication: ACTINIC KERATOSIS
     Dosage: 1 APPL TWICE A WEEK  060
  2. ALDARA [Suspect]
     Indication: ACTINIC KERATOSIS
     Dosage: 1 APPL TWICE A WEEK 060

REACTIONS (1)
  - PNEUMONIA [None]
